FAERS Safety Report 26126219 (Version 1)
Quarter: 2025Q4

REPORT INFORMATION
  Report Type: Report from Study
  Country: US (occurrence: US)
  Receive Date: 20251205
  Receipt Date: 20251205
  Transmission Date: 20260117
  Serious: Yes (Other)
  Sender: ABBVIE
  Company Number: US-ABBVIE-6576675

PATIENT
  Age: 69 Year
  Sex: Male

DRUGS (1)
  1. SKYRIZI [Suspect]
     Active Substance: RISANKIZUMAB-RZAA
     Indication: Crohn^s disease
     Route: 058
     Dates: start: 20250322

REACTIONS (3)
  - Macular degeneration [Recovering/Resolving]
  - Crohn^s disease [Not Recovered/Not Resolved]
  - Scab [Unknown]

NARRATIVE: CASE EVENT DATE: 20250101
